FAERS Safety Report 5949711-7 (Version None)
Quarter: 2008Q4

REPORT INFORMATION
  Report Type: 
  Country: None (occurrence: None)
  Receive Date: 20081112
  Receipt Date: 20081030
  Transmission Date: 20090506
  Serious: Yes (Hospitalization)
  Sender: FDA-Public Use
  Company Number: IN-ELI_LILLY_AND_COMPANY-IN200810007106

PATIENT
  Sex: Male
  Weight: 55 kg

DRUGS (10)
  1. PEMETREXED [Suspect]
     Indication: NON-SMALL CELL LUNG CANCER
     Dosage: 250 MG/M2, ON DAY 1,22,43
     Route: 042
     Dates: start: 20080821
  2. CARBOPLATIN [Suspect]
     Indication: NON-SMALL CELL LUNG CANCER
     Dosage: 2.5 AUC, ON D1,8,22,39,43
     Route: 042
     Dates: start: 20080821
  3. RADIATION [Suspect]
     Indication: NON-SMALL CELL LUNG CANCER
     Dosage: 2 CENTIGRAY, ON D1-49
     Route: 065
     Dates: start: 20080821
  4. FOLIC ACID [Concomitant]
     Indication: SUPPLEMENTATION THERAPY
     Dates: start: 20080728
  5. VITAMIN B-12 [Concomitant]
     Indication: SUPPLEMENTATION THERAPY
     Dates: start: 20080728
  6. OXETHAZINE [Concomitant]
     Indication: GASTRITIS
     Dates: start: 20080902
  7. ALUMINIUM HYDROCHLORIDE [Concomitant]
     Indication: GASTRITIS
     Dates: start: 20080902
  8. ENSURE /01757701/ [Concomitant]
     Indication: SUPPLEMENTATION THERAPY
     Dates: start: 20080917
  9. FLUCONAZOLE [Concomitant]
     Indication: ANTIFUNGAL PROPHYLAXIS
     Dosage: 200 MG, DAILY (1/D)
     Route: 042
     Dates: start: 20080919
  10. PANTOPRAZOLE SODIUM [Concomitant]
     Indication: HYPERCHLORHYDRIA
     Dosage: 40 MG, UNK
     Dates: start: 20080919

REACTIONS (3)
  - BLOOD POTASSIUM DECREASED [None]
  - MEDIASTINITIS [None]
  - PLATELET COUNT DECREASED [None]
